FAERS Safety Report 4783071-2 (Version None)
Quarter: 2005Q3

REPORT INFORMATION
  Report Type: 
  Country: None (occurrence: None)
  Receive Date: 20050914
  Receipt Date: 20050614
  Transmission Date: 20060218
  Serious: Yes (Death, Hospitalization)
  Sender: FDA-Public Use
  Company Number: 167-20785-05060271

PATIENT
  Age: 63 Year
  Sex: Female

DRUGS (9)
  1. THALIDOMIDE - PHARMION (THALIDOMIDE) (CAPSULES) [Suspect]
     Indication: SMALL CELL LUNG CANCER STAGE UNSPECIFIED
     Dosage: 100 MG, DAILY, ORAL
     Route: 048
     Dates: start: 20050513, end: 20050612
  2. CARBOPLATIN [Suspect]
     Indication: SMALL CELL LUNG CANCER STAGE UNSPECIFIED
     Dosage: 710 MG, DAILY, INTRAVENOUS
     Route: 042
     Dates: start: 20050513, end: 20050603
  3. ETOPOSIDE [Suspect]
     Indication: SMALL CELL LUNG CANCER STAGE UNSPECIFIED
     Dosage: 240 MG, DAILY, INTRAVENOUS
     Route: 042
     Dates: start: 20050513, end: 20050603
  4. LANSOPRAZOLE [Concomitant]
  5. ATORVASTATIN [Concomitant]
  6. AMIODARONE [Concomitant]
  7. DEXAMETHASONE [Concomitant]
  8. LOPERAMIDE [Concomitant]
  9. BECLOMETHASONE (BECLOMETASONE DIPROPIONATE) [Concomitant]

REACTIONS (5)
  - DEATH [None]
  - DIARRHOEA [None]
  - DISEASE PROGRESSION [None]
  - NEUTROPENIC SEPSIS [None]
  - RENAL IMPAIRMENT [None]
